FAERS Safety Report 11368983 (Version 6)
Quarter: 2017Q3

REPORT INFORMATION
  Report Type: Spontaneous
  Country: MY (occurrence: MY)
  Receive Date: 20150812
  Receipt Date: 20170801
  Transmission Date: 20171127
  Serious: Yes (Hospitalization, Other)
  Sender: FDA-Public Use
  Company Number: MY-AMGEN-MYSSP2015057644

PATIENT
  Age: 61 Year
  Sex: Female
  Weight: 62 kg

DRUGS (6)
  1. NEUPOGEN [Suspect]
     Active Substance: FILGRASTIM
     Dosage: 300 1E1/4G MICROGRAM  (30 MU/0.5 ML), UNK (30 MU/0.5 ML)
     Route: 058
  2. NEUPOGEN [Suspect]
     Active Substance: FILGRASTIM
     Indication: NEUTROPENIA
     Dosage: 300 MCG, QD (30 MU/0.5 ML)
     Route: 058
     Dates: start: 20150401, end: 20150615
  3. FLUDARABINE [Concomitant]
     Active Substance: FLUDARABINE PHOSPHATE
     Indication: ACUTE MYELOID LEUKAEMIA
     Dosage: 49 MG, UNK
     Route: 042
     Dates: start: 20150401, end: 20150405
  4. NEUPOGEN [Suspect]
     Active Substance: FILGRASTIM
     Dosage: 1 DF, UNK (30 MU/0.5 ML)
     Route: 058
  5. NEUPOGEN [Suspect]
     Active Substance: FILGRASTIM
     Dosage: 1 DF, UNK (30 MU/0.5 ML)
     Route: 058
  6. CYTARABINE. [Concomitant]
     Active Substance: CYTARABINE
     Indication: ACUTE MYELOID LEUKAEMIA
     Dosage: 3280 MG, QD
     Route: 042
     Dates: start: 20150401, end: 20150405

REACTIONS (4)
  - General physical health deterioration [Unknown]
  - Wrong technique in product usage process [Unknown]
  - Drug ineffective [Unknown]
  - Neutrophil count decreased [Not Recovered/Not Resolved]

NARRATIVE: CASE EVENT DATE: 20150401
